FAERS Safety Report 9332367 (Version 1)
Quarter: 2013Q2

REPORT INFORMATION
  Report Type: Spontaneous
  Country: US (occurrence: US)
  Receive Date: 20130606
  Receipt Date: 20130606
  Transmission Date: 20140414
  Serious: Yes (Hospitalization)
  Sender: FDA-Public Use
  Company Number: PHEH2013US011872

PATIENT
  Sex: Male

DRUGS (4)
  1. DIOVAN [Suspect]
     Dosage: 320 MG, UNK
  2. VALSARTAN [Suspect]
  3. HYDROCHLOROTHIAZIDE [Suspect]
  4. AMLODIPINE [Suspect]

REACTIONS (1)
  - Hypertension [Recovering/Resolving]
